FAERS Safety Report 8789956 (Version 6)
Quarter: 2013Q1

REPORT INFORMATION
  Report Type: Spontaneous
  Country: DE (occurrence: DE)
  Receive Date: 20120917
  Receipt Date: 20130129
  Transmission Date: 20140127
  Serious: Yes (Other)
  Sender: FDA-Public Use
  Company Number: DE-JNJFOC-20120905355

PATIENT
  Age: 48 Year
  Sex: Male

DRUGS (3)
  1. PREZISTA [Suspect]
     Indication: HIV INFECTION
     Route: 048
     Dates: start: 201206
  2. NORVIR [Concomitant]
     Indication: HIV INFECTION
     Route: 065
  3. KIVEXA [Concomitant]
     Indication: HIV INFECTION
     Route: 065

REACTIONS (5)
  - Condition aggravated [Unknown]
  - Pain [Unknown]
  - Diarrhoea [Unknown]
  - Abdominal pain upper [Unknown]
  - Nausea [Unknown]
